FAERS Safety Report 18025121 (Version 3)
Quarter: 2025Q4

REPORT INFORMATION
  Report Type: Report from Study
  Country: US (occurrence: US)
  Receive Date: 20200715
  Receipt Date: 20251231
  Transmission Date: 20260118
  Serious: No
  Sender: PFIZER
  Company Number: US-PFIZER INC-2020270538

PATIENT
  Age: 65 Year
  Sex: Female
  Weight: 68.04 kg

DRUGS (2)
  1. XELJANZ XR [Suspect]
     Active Substance: TOFACITINIB CITRATE
     Indication: Rheumatoid arthritis
     Dosage: 11 MG, 1X/DAY
     Route: 048
  2. XELJANZ XR [Suspect]
     Active Substance: TOFACITINIB CITRATE
     Indication: Systemic lupus erythematosus

REACTIONS (7)
  - Eye disorder [Unknown]
  - Arthritis [Unknown]
  - Influenza [Unknown]
  - Pyrexia [Unknown]
  - Product residue present [Unknown]
  - Product prescribing error [Unknown]
  - Product dose omission issue [Unknown]
